FAERS Safety Report 24279742 (Version 1)
Quarter: 2024Q3

REPORT INFORMATION
  Report Type: Report from Study
  Country: CO (occurrence: CO)
  Receive Date: 20240904
  Receipt Date: 20240904
  Transmission Date: 20241016
  Serious: Yes (Hospitalization, Other)
  Sender: BIOVITRUM
  Company Number: CO-AstraZeneca-2024A197061

PATIENT
  Age: 50 Day
  Sex: Female
  Weight: 4.3 kg

DRUGS (1)
  1. SYNAGIS [Suspect]
     Active Substance: PALIVIZUMAB
     Indication: Respiratory syncytial virus infection
     Dosage: MONTHLY
     Route: 030
     Dates: start: 20240709

REACTIONS (3)
  - Rhinorrhoea [Recovering/Resolving]
  - Cyanosis [Recovering/Resolving]
  - Apnoea [Recovering/Resolving]

NARRATIVE: CASE EVENT DATE: 20240822
